FAERS Safety Report 7051504-7 (Version None)
Quarter: 2010Q4

REPORT INFORMATION
  Report Type: 
  Country: None (occurrence: None)
  Receive Date: 20101019
  Receipt Date: 20101015
  Transmission Date: 20110411
  Serious: Yes (Death, Hospitalization)
  Sender: FDA-Public Use
  Company Number: PHHY2010BR68323

PATIENT
  Sex: Male

DRUGS (2)
  1. EXELON [Suspect]
     Indication: MEMORY IMPAIRMENT
     Dosage: 1 DF, QD (9MG/5CM2)
     Route: 062
     Dates: start: 20090101
  2. EXELON [Suspect]
     Dosage: 1 DF, QD (18MG/10CM2)
     Route: 062

REACTIONS (7)
  - BACK PAIN [None]
  - CARDIO-RESPIRATORY ARREST [None]
  - DYSURIA [None]
  - MULTI-ORGAN FAILURE [None]
  - NOSOCOMIAL INFECTION [None]
  - PYELONEPHRITIS [None]
  - SEPTIC SHOCK [None]
